FAERS Safety Report 15491682 (Version 1)
Quarter: 2018Q4

REPORT INFORMATION
  Report Type: Spontaneous
  Country: GB (occurrence: GB)
  Receive Date: 20181012
  Receipt Date: 20181012
  Transmission Date: 20190205
  Serious: Yes (Other)
  Sender: FDA-Public Use
  Company Number: GB-TEVA-2018-GB-963483

PATIENT
  Age: 28 Year
  Sex: Female

DRUGS (6)
  1. MEBEVERINE [Concomitant]
     Active Substance: MEBEVERINE
     Route: 065
  2. ALVERINE CITRATE [Concomitant]
     Active Substance: ALVERINE CITRATE
     Route: 065
  3. BUSCOPAN [Concomitant]
     Active Substance: BUTYLSCOPOLAMINE BROMIDE
     Route: 065
  4. FLUOXETINE HYDROCHLORIDE. [Concomitant]
     Active Substance: FLUOXETINE HYDROCHLORIDE
     Route: 065
  5. MINTEC [Concomitant]
     Route: 065
  6. SERTRALINE HYDROCHLORIDE. [Suspect]
     Active Substance: SERTRALINE HYDROCHLORIDE
     Indication: ANXIETY
     Route: 048

REACTIONS (1)
  - Irritable bowel syndrome [Not Recovered/Not Resolved]
